FAERS Safety Report 4318803-0 (Version None)
Quarter: 2004Q1

REPORT INFORMATION
  Report Type: 
  Country: None (occurrence: None)
  Receive Date: 20040315
  Receipt Date: 20040302
  Transmission Date: 20041129
  Serious: Yes (Death, Other)
  Sender: FDA-Public Use
  Company Number: 2004001636

PATIENT
  Age: 40 Year
  Sex: Male

DRUGS (2)
  1. GEODON [Suspect]
     Indication: SCHIZOPHRENIA
     Dosage: 240 MG (BID), ORAL
     Route: 048
     Dates: start: 20030101
  2. QUETIAPINE FUMARATE (QUETIAPINE FUMARATE) [Concomitant]

REACTIONS (2)
  - ARRHYTHMIA [None]
  - SUDDEN DEATH [None]
